FAERS Safety Report 6195404-3 (Version None)
Quarter: 2009Q2

REPORT INFORMATION
  Report Type: 
  Country: None (occurrence: None)
  Receive Date: 20090519
  Receipt Date: 20090303
  Transmission Date: 20091009
  Serious: Yes (Other)
  Sender: FDA-Public Use
  Company Number: US-ASTRAZENECA-2009UW05757

PATIENT
  Age: 40 Year
  Sex: Female

DRUGS (1)
  1. SYMBICORT [Suspect]
     Indication: CHRONIC OBSTRUCTIVE PULMONARY DISEASE
     Route: 055
     Dates: start: 20090201, end: 20090202

REACTIONS (3)
  - HYPERSENSITIVITY [None]
  - LIP SWELLING [None]
  - SWOLLEN TONGUE [None]
